FAERS Safety Report 24661612 (Version 3)
Quarter: 2025Q1

REPORT INFORMATION
  Report Type: Spontaneous
  Country: US (occurrence: US)
  Receive Date: 20241125
  Receipt Date: 20250120
  Transmission Date: 20250409
  Serious: No
  Sender: SANOFI AVENTIS
  Company Number: US-SA-2024SA336440

PATIENT
  Sex: Female
  Weight: 68.027 kg

DRUGS (5)
  1. DUPIXENT [Suspect]
     Active Substance: DUPILUMAB
     Indication: Dermatitis atopic
     Dosage: 300 MG, QOW
     Route: 058
     Dates: start: 202305
  2. AZITHROMYCIN [Concomitant]
     Active Substance: AZITHROMYCIN
  3. METHYLPREDNISOLONE [Concomitant]
     Active Substance: METHYLPREDNISOLONE
  4. TRIAMCINOLONE ACETONIDE [Concomitant]
     Active Substance: TRIAMCINOLONE ACETONIDE
  5. BROMPHENIRAMINE\PSEUDOEPHEDRINE [Concomitant]
     Active Substance: BROMPHENIRAMINE\PSEUDOEPHEDRINE

REACTIONS (3)
  - Injection site vesicles [Unknown]
  - Hypersensitivity [Unknown]
  - Injection site pain [Unknown]
